FAERS Safety Report 6174588-7 (Version None)
Quarter: 2009Q2

REPORT INFORMATION
  Report Type: 
  Country: None (occurrence: None)
  Receive Date: 20090430
  Receipt Date: 20080807
  Transmission Date: 20091009
  Serious: Yes (Hospitalization)
  Sender: FDA-Public Use
  Company Number: US-ASTRAZENECA-2008UW16199

PATIENT
  Age: 42 Year
  Sex: Female
  Weight: 70.3 kg

DRUGS (4)
  1. NEXIUM [Suspect]
     Indication: GASTRIC ULCER
     Dosage: 40 MG
     Route: 048
     Dates: start: 20080725
  2. ASCORBIC ACID [Concomitant]
  3. LOVAZA [Concomitant]
  4. IRON [Concomitant]

REACTIONS (1)
  - BLOOD PRESSURE INCREASED [None]
